FAERS Safety Report 6151759-7 (Version None)
Quarter: 2009Q2

REPORT INFORMATION
  Report Type: 
  Country: None (occurrence: None)
  Receive Date: 20090410
  Receipt Date: 20090407
  Transmission Date: 20091009
  Serious: Yes (Hospitalization)
  Sender: FDA-Public Use
  Company Number: B0564010A

PATIENT
  Sex: Female

DRUGS (8)
  1. AUGMENTIN '125' [Suspect]
     Indication: NASOPHARYNGITIS
     Dosage: 1G THREE TIMES PER DAY
     Route: 048
     Dates: start: 20090102, end: 20090106
  2. CLARITHROMYCIN [Suspect]
     Indication: NASOPHARYNGITIS
     Route: 048
     Dates: start: 20081230, end: 20090102
  3. DERINOX [Concomitant]
     Indication: NASOPHARYNGITIS
     Route: 065
     Dates: start: 20081230, end: 20090102
  4. RHINOFLUIMUCIL [Concomitant]
     Indication: NASOPHARYNGITIS
     Route: 065
     Dates: start: 20090102, end: 20090106
  5. PREDNISOLONE [Concomitant]
     Indication: NASOPHARYNGITIS
     Route: 065
     Dates: start: 20090102, end: 20090106
  6. PNEUMOREL [Concomitant]
     Indication: NASOPHARYNGITIS
     Route: 065
     Dates: start: 20090102, end: 20090106
  7. CELESTENE [Concomitant]
     Route: 030
     Dates: start: 20090108
  8. BIOCALYPTOL [Concomitant]
     Route: 065
     Dates: start: 20090109, end: 20090115

REACTIONS (2)
  - LEUKOCYTOCLASTIC VASCULITIS [None]
  - PURPURA NON-THROMBOCYTOPENIC [None]
